FAERS Safety Report 24296823 (Version 4)
Quarter: 2025Q3

REPORT INFORMATION
  Report Type: Spontaneous
  Country: EU (occurrence: EU)
  Receive Date: 20240909
  Receipt Date: 20250809
  Transmission Date: 20251020
  Serious: Yes (Other)
  Sender: ALEXION PHARMACEUTICALS
  Company Number: EU-AstraZeneca-CH-00693135A

PATIENT
  Age: 17 Year
  Sex: Male
  Weight: 70 kg

DRUGS (1)
  1. ULTOMIRIS [Suspect]
     Active Substance: RAVULIZUMAB-CWVZ
     Indication: Atypical haemolytic uraemic syndrome
     Dosage: 3300 MILLIGRAM, Q8W
     Dates: start: 20231013

REACTIONS (3)
  - Pancreatitis acute [Recovered/Resolved]
  - Cholelithiasis [Recovered/Resolved]
  - Testicular microlithiasis [Recovered/Resolved]

NARRATIVE: CASE EVENT DATE: 20230801
